FAERS Safety Report 24109080 (Version 2)
Quarter: 2024Q3

REPORT INFORMATION
  Report Type: Spontaneous
  Country: FR (occurrence: FR)
  Receive Date: 20240718
  Receipt Date: 20240826
  Transmission Date: 20241017
  Serious: Yes (Other)
  Sender: MYLAN
  Company Number: FR-COOPERFR-202400355

PATIENT
  Age: 56 Year
  Sex: Male

DRUGS (6)
  1. GABAPENTIN [Suspect]
     Active Substance: GABAPENTIN
     Indication: Pain in extremity
     Dosage: 2400 MILLIGRAM, QD
     Route: 065
  2. MORPHINE [Suspect]
     Active Substance: MORPHINE
     Indication: Pain in extremity
     Dosage: QD (UP TO 100 MG PER DAY)
     Route: 042
  3. AMITRIPTYLINE HYDROCHLORIDE [Suspect]
     Active Substance: AMITRIPTYLINE HYDROCHLORIDE
     Indication: Pain in extremity
     Dosage: 50 MILLIGRAM, QD
     Route: 065
  4. KETAMINE HYDROCHLORIDE [Suspect]
     Active Substance: KETAMINE HYDROCHLORIDE
     Indication: Pain in extremity
     Dosage: 100 MILLIGRAM, QD (CONTINUOUS INFUSION)
     Route: 042
  5. XEOMIN [Concomitant]
     Active Substance: INCOBOTULINUMTOXINA
     Indication: Pain
     Dosage: 1 INJECTION OF 100 UNITS AROUND THE FEMORAL NERVE GUIDED BY SONOGRAPHY
     Route: 053
  6. ROPIVACAINE [Concomitant]
     Active Substance: ROPIVACAINE
     Indication: Analgesic therapy
     Dosage: 4 MILLILITER, TOTAL (2 MG/ML, 4 ML IN TOTAL)
     Route: 053

REACTIONS (6)
  - Skin necrosis [Unknown]
  - Disease progression [Unknown]
  - Confusional state [Unknown]
  - Nausea [Unknown]
  - Constipation [Unknown]
  - Therapeutic product effect incomplete [Unknown]
